FAERS Safety Report 19575637 (Version 1)
Quarter: 2021Q3

REPORT INFORMATION
  Report Type: Spontaneous
  Country: DE (occurrence: DE)
  Receive Date: 20210719
  Receipt Date: 20210719
  Transmission Date: 20211014
  Serious: Yes (Other)
  Sender: FDA-Public Use
  Company Number: DE-009507513-2107DEU005015

PATIENT
  Sex: Male

DRUGS (5)
  1. CARBOPLATIN. [Suspect]
     Active Substance: CARBOPLATIN
     Indication: NON-SMALL CELL LUNG CANCER
     Dosage: UNK
     Route: 065
     Dates: start: 2020, end: 20200604
  2. PEMETREXED. [Suspect]
     Active Substance: PEMETREXED
     Dosage: UNK
     Route: 065
     Dates: start: 2020, end: 20200604
  3. PEMETREXED. [Suspect]
     Active Substance: PEMETREXED
     Indication: NON-SMALL CELL LUNG CANCER
     Dosage: UNK, QMO
     Route: 065
     Dates: end: 202106
  4. PEMBROLIZUMAB. [Suspect]
     Active Substance: PEMBROLIZUMAB
     Indication: NON-SMALL CELL LUNG CANCER
     Dosage: UNK, QMO
     Route: 065
     Dates: end: 202106
  5. PEMBROLIZUMAB. [Suspect]
     Active Substance: PEMBROLIZUMAB
     Dosage: UNK
     Route: 065
     Dates: start: 2020, end: 20200604

REACTIONS (2)
  - Malignant neoplasm progression [Unknown]
  - Non-small cell lung cancer [Unknown]
